FAERS Safety Report 23228844 (Version 1)
Quarter: 2023Q4

REPORT INFORMATION
  Report Type: Other
  Country: US (occurrence: None)
  Receive Date: 20231126
  Receipt Date: 20231126
  Transmission Date: 20240110
  Serious: No
  Sender: FDA-Public Use
  Company Number: US-ROCHE-3409131

PATIENT
  Age: 73 Year
  Sex: Female

DRUGS (2)
  1. TRASTUZUMAB [Suspect]
     Active Substance: TRASTUZUMAB
     Indication: Uterine cancer
     Route: 065
  2. TRASTUZUMAB [Suspect]
     Active Substance: TRASTUZUMAB
     Indication: Neoplasm malignant

REACTIONS (5)
  - Anaemia [Recovered/Resolved]
  - Vomiting [Recovered/Resolved]
  - Nausea [Recovered/Resolved]
  - Neuropathy peripheral [Recovered/Resolved]
  - Fatigue [Not Recovered/Not Resolved]
